FAERS Safety Report 7909481-X (Version None)
Quarter: 2011Q4

REPORT INFORMATION
  Report Type: 
  Country: None (occurrence: None)
  Receive Date: 20111111
  Receipt Date: 20111102
  Transmission Date: 20120403
  Serious: Yes (Other)
  Sender: FDA-Public Use
  Company Number: US-ELI_LILLY_AND_COMPANY-US201108004505

PATIENT
  Age: 60 Year
  Sex: Male

DRUGS (7)
  1. TEKTURNA [Concomitant]
  2. KLOR-CON [Concomitant]
  3. CIALIS [Suspect]
     Dosage: UNK, QD
  4. CIALIS [Suspect]
     Dosage: UNK, QD
  5. LISINOPRIL [Concomitant]
  6. NIFEDIPINE [Concomitant]
  7. TEARS NATURALE [Concomitant]

REACTIONS (1)
  - EXOPHTHALMOS [None]
